FAERS Safety Report 8788139 (Version 2)
Quarter: 2015Q2

REPORT INFORMATION
  Report Type: Report from Study
  Country: US (occurrence: US)
  Receive Date: 20120914
  Receipt Date: 20150630
  Transmission Date: 20150821
  Serious: Yes (Death)
  Sender: FDA-Public Use
  Company Number: US-ROCHE-1126945

PATIENT
  Sex: Female

DRUGS (19)
  1. DEXAMETHASONE SODIUM PHOSPHATE. [Concomitant]
     Active Substance: DEXAMETHASONE SODIUM PHOSPHATE
     Route: 042
  2. DEXAMETHASONE SODIUM PHOSPHATE. [Concomitant]
     Active Substance: DEXAMETHASONE SODIUM PHOSPHATE
     Route: 042
  3. VANCOMYCIN [Concomitant]
     Active Substance: VANCOMYCIN
     Route: 042
  4. CPT-11 [Concomitant]
     Active Substance: IRINOTECAN
     Route: 042
  5. HEXADROL [Concomitant]
     Active Substance: DEXAMETHASONE
     Route: 065
  6. KEPPRA [Concomitant]
     Active Substance: LEVETIRACETAM
  7. TYLENOL [Concomitant]
     Active Substance: ACETAMINOPHEN
     Route: 048
  8. BENADRYL [Concomitant]
     Active Substance: DIPHENHYDRAMINE HYDROCHLORIDE
     Route: 065
  9. ALOXI [Concomitant]
     Active Substance: PALONOSETRON HYDROCHLORIDE
     Route: 042
  10. DEXAMETHASONE SODIUM PHOSPHATE. [Concomitant]
     Active Substance: DEXAMETHASONE SODIUM PHOSPHATE
     Route: 042
  11. NEULASTA [Concomitant]
     Active Substance: PEGFILGRASTIM
     Route: 065
  12. AVASTIN [Suspect]
     Active Substance: BEVACIZUMAB
     Indication: BRAIN NEOPLASM MALIGNANT
     Route: 042
     Dates: start: 20071112
  13. AVASTIN [Suspect]
     Active Substance: BEVACIZUMAB
     Route: 042
     Dates: start: 20081009
  14. AVASTIN [Suspect]
     Active Substance: BEVACIZUMAB
     Route: 042
     Dates: start: 20090108
  15. CPT-11 [Concomitant]
     Active Substance: IRINOTECAN
     Route: 042
  16. AVASTIN [Suspect]
     Active Substance: BEVACIZUMAB
     Route: 042
     Dates: start: 20080626
  17. CPT-11 [Concomitant]
     Active Substance: IRINOTECAN
     Route: 042
  18. CPT-11 [Concomitant]
     Active Substance: IRINOTECAN
     Route: 042
  19. DEXAMETHASONE SODIUM PHOSPHATE. [Concomitant]
     Active Substance: DEXAMETHASONE SODIUM PHOSPHATE
     Route: 042

REACTIONS (27)
  - Urinary incontinence [Unknown]
  - Tearfulness [Unknown]
  - Aphasia [Unknown]
  - Musculoskeletal pain [Unknown]
  - Asthenia [Unknown]
  - Arthralgia [Unknown]
  - Pain in extremity [Unknown]
  - Hypoaesthesia [Unknown]
  - Depression [Unknown]
  - Hemiparesis [Unknown]
  - Urinary hesitation [Unknown]
  - Insomnia [Unknown]
  - Motor dysfunction [Unknown]
  - Arthritis [Unknown]
  - Infection [Recovered/Resolved]
  - Upper limb fracture [Unknown]
  - Gait disturbance [Unknown]
  - Off label use [Unknown]
  - Headache [Unknown]
  - Lymphadenopathy [Recovered/Resolved]
  - Constipation [Unknown]
  - Pain [Unknown]
  - Fatigue [Unknown]
  - Death [Fatal]
  - Cellulitis [Recovered/Resolved]
  - Speech disorder [Unknown]
  - Fall [Unknown]
